FAERS Safety Report 9664195 (Version 1)
Quarter: 2013Q4

REPORT INFORMATION
  Report Type: Spontaneous
  Country: US (occurrence: None)
  Receive Date: 20131030
  Receipt Date: 20131030
  Transmission Date: 20140711
  Serious: Yes (Hospitalization)
  Sender: FDA-Public Use
  Company Number: None

PATIENT
  Age: 66 Year
  Sex: Male
  Weight: 95.3 kg

DRUGS (8)
  1. HEPARIN [Suspect]
     Indication: INTRAOPERATIVE CARE
     Dosage: 8000 UNITS  INTRAVENOUS
     Route: 042
     Dates: start: 20101021, end: 20101021
  2. HYDROMORPHONE [Concomitant]
  3. NITROGLYCERIN [Concomitant]
  4. CEFAZOLIN [Concomitant]
  5. HYDRALAZINE [Concomitant]
  6. FENTANYL [Concomitant]
  7. MIDAZOLAM [Concomitant]
  8. SODIUM BICARBONATE [Concomitant]

REACTIONS (1)
  - Pancreatitis [None]
